FAERS Safety Report 6477402-5 (Version None)
Quarter: 2009Q4

REPORT INFORMATION
  Report Type: 
  Country: None (occurrence: None)
  Receive Date: 20091207
  Receipt Date: 20091102
  Transmission Date: 20100525
  Serious: Yes (Other)
  Sender: FDA-Public Use
  Company Number: JP-SANOFI-AVENTIS-200811350JP

PATIENT
  Sex: Male

DRUGS (1)
  1. FUROSEMIDE [Suspect]
     Route: 048
     Dates: start: 20030101

REACTIONS (1)
  - PEMPHIGOID [None]
